FAERS Safety Report 9696942 (Version 2)
Quarter: 2013Q4

REPORT INFORMATION
  Report Type: Spontaneous
  Country: US (occurrence: US)
  Receive Date: 20131119
  Receipt Date: 20131119
  Transmission Date: 20140711
  Serious: Yes (Other)
  Sender: FDA-Public Use
  Company Number: US-GILEAD-2013-0087590

PATIENT
  Age: 84 Year
  Sex: Female

DRUGS (1)
  1. LETAIRIS [Suspect]
     Indication: PULMONARY ARTERIAL HYPERTENSION
     Dosage: 5 MG, QD
     Route: 048
     Dates: start: 20131002, end: 20131010

REACTIONS (9)
  - Cardiac pacemaker insertion [Unknown]
  - Deformity [Unknown]
  - Breast enlargement [Unknown]
  - Unevaluable event [Unknown]
  - Wheelchair user [Unknown]
  - Oxygen supplementation [Unknown]
  - Nasopharyngitis [Unknown]
  - Local swelling [Unknown]
  - Gravitational oedema [Not Recovered/Not Resolved]
